FAERS Safety Report 8789508 (Version 1)
Quarter: 2012Q4

REPORT INFORMATION
  Report Type: Spontaneous
  Country: GB (occurrence: None)
  Receive Date: 20120906
  Receipt Date: 20120906
  Transmission Date: 20130627
  Serious: Yes (Other)
  Sender: FDA-Public Use
  Company Number: GER/UKI/12/0025631

PATIENT
  Age: 63 Year
  Sex: Male

DRUGS (7)
  1. CLOPIDOGREL [Suspect]
     Indication: DRUG USE FOR UNKNOWN INDICATION
     Route: 048
     Dates: start: 20120806, end: 20120813
  2. ASPRIN (ACETYLSALICYLIC ACID) [Concomitant]
  3. DIPYRIDAMOLE (DIPYRIDAMOLE) [Concomitant]
  4. FELODIPINE (FELODIPINE) [Concomitant]
  5. PARACETAMOL (PARACETAMOL) [Concomitant]
  6. SIMVASTATIN (SIMVASTATIN) [Concomitant]
  7. VALSARTAN (VALSARTAN) [Concomitant]

REACTIONS (5)
  - Fatigue [None]
  - Hyperhidrosis [None]
  - Feeling hot [None]
  - Myalgia [None]
  - Paraesthesia [None]
